FAERS Safety Report 24730441 (Version 1)
Quarter: 2024Q4

REPORT INFORMATION
  Report Type: Report from Study
  Country: US (occurrence: US)
  Receive Date: 20241213
  Receipt Date: 20241213
  Transmission Date: 20250115
  Serious: Yes (Other)
  Sender: ALEXION PHARMACEUTICALS
  Company Number: US-AstraZeneca-CH-00756601A

PATIENT
  Age: 59 Year
  Weight: 91.625 kg

DRUGS (16)
  1. TEZEPELUMAB [Suspect]
     Active Substance: TEZEPELUMAB
     Indication: Asthma
     Dosage: UNK
  2. TEZEPELUMAB [Suspect]
     Active Substance: TEZEPELUMAB
     Dosage: UNK
     Route: 058
  3. TEZEPELUMAB [Suspect]
     Active Substance: TEZEPELUMAB
     Dosage: UNK
  4. TEZEPELUMAB [Suspect]
     Active Substance: TEZEPELUMAB
     Dosage: UNK
     Route: 058
  5. VITAMIN D [Concomitant]
     Active Substance: VITAMIN D NOS
  6. LINZESS [Concomitant]
     Active Substance: LINACLOTIDE
     Dosage: 2 DOSAGE FORM, BID
  7. PREMARIN [Concomitant]
     Active Substance: ESTROGENS, CONJUGATED
     Dosage: 0.45 MILLIGRAM, QD
  8. FOLIC ACID [Concomitant]
     Active Substance: FOLIC ACID
     Dosage: 1 DOSAGE FORM, QD
     Route: 048
  9. FOLIC ACID [Concomitant]
     Active Substance: FOLIC ACID
     Dosage: 1 DOSAGE FORM, QD
  10. METHOTREXATE SODIUM [Concomitant]
     Active Substance: METHOTREXATE SODIUM
     Dosage: 2.5 MILLIGRAM, QW
     Route: 048
  11. METHOTREXATE SODIUM [Concomitant]
     Active Substance: METHOTREXATE SODIUM
     Dosage: 2.5 MILLIGRAM, QW
  12. GABAPENTIN [Concomitant]
     Active Substance: GABAPENTIN
     Dosage: 100 MILLIGRAM, QD
     Route: 048
  13. GABAPENTIN [Concomitant]
     Active Substance: GABAPENTIN
     Dosage: 100 MILLIGRAM, QD
  14. PREDNISONE [Concomitant]
     Active Substance: PREDNISONE
     Route: 048
  15. PREDNISONE [Concomitant]
     Active Substance: PREDNISONE
  16. OSELTAMIVIR PHOSPHATE [Concomitant]
     Active Substance: OSELTAMIVIR PHOSPHATE

REACTIONS (12)
  - Rheumatoid arthritis [Unknown]
  - Pneumonia [Unknown]
  - Cushing^s syndrome [Unknown]
  - Pulmonary mass [Unknown]
  - Dyspnoea [Unknown]
  - Cough [Unknown]
  - Swelling [Unknown]
  - Bronchial wall thickening [Unknown]
  - Atelectasis [Unknown]
  - Swelling face [Unknown]
  - Peripheral swelling [Unknown]
  - Cardiac valve disease [Unknown]
